FAERS Safety Report 6464446-2 (Version None)
Quarter: 2009Q4

REPORT INFORMATION
  Report Type: 
  Country: None (occurrence: None)
  Receive Date: 20091201
  Receipt Date: 20091126
  Transmission Date: 20100525
  Serious: Yes (Hospitalization)
  Sender: FDA-Public Use
  Company Number: DE-EISAI INC.-E2090-00898-CLI-DE

PATIENT
  Sex: Male
  Weight: 53 kg

DRUGS (3)
  1. E2090/CARBAMAZEPINE [Suspect]
     Dosage: DOUBLE- BLIND
     Route: 048
     Dates: start: 20081201, end: 20090101
  2. E2090/CARBAMAZEPINE [Suspect]
     Dosage: DOUBLE- BLIND
     Route: 048
     Dates: start: 20090101, end: 20090101
  3. E2090/CARBAMAZEPINE [Suspect]
     Dosage: DOUBLE- BLIND
     Route: 048
     Dates: start: 20090122

REACTIONS (2)
  - FACIAL BONES FRACTURE [None]
  - WRIST FRACTURE [None]
